FAERS Safety Report 8156310-8 (Version None)
Quarter: 2012Q1

REPORT INFORMATION
  Report Type: 
  Country: None (occurrence: None)
  Receive Date: 20120222
  Receipt Date: 20110816
  Transmission Date: 20120608
  Serious: No
  Sender: FDA-Public Use
  Company Number: US-BRISTOL-MYERS SQUIBB COMPANY-15731805

PATIENT
  Age: 64 Year
  Sex: Female

DRUGS (1)
  1. KENALOG-10 [Suspect]
     Indication: DERMATITIS
     Dosage: NO OF INJ:6 LAST INF:SEP2010

REACTIONS (2)
  - PARAESTHESIA [None]
  - INJECTION SITE ATROPHY [None]
